FAERS Safety Report 17171009 (Version 1)
Quarter: 2019Q4

REPORT INFORMATION
  Report Type: Spontaneous
  Country: SE (occurrence: SE)
  Receive Date: 20191218
  Receipt Date: 20191218
  Transmission Date: 20200122
  Serious: Yes (Hospitalization)
  Sender: FDA-Public Use
  Company Number: SE-SA-2019SA345165

PATIENT
  Sex: Male

DRUGS (4)
  1. PROPAVAN [Suspect]
     Active Substance: PROPIOMAZINE
     Dosage: UNK UNK, UNK, UPTILL 20PROPAVAN^
     Route: 048
     Dates: start: 20180822, end: 20180822
  2. OXAZEPAM. [Suspect]
     Active Substance: OXAZEPAM
     Dosage: UNK UNK, UNK, 4
     Route: 048
     Dates: start: 20180822, end: 20180822
  3. DIAZEPAM. [Suspect]
     Active Substance: DIAZEPAM
     Dosage: UNK UNK, UNK, ^2 ST^
     Route: 048
     Dates: start: 20180822, end: 20180822
  4. ZOLPIDEM TARTRATE. [Suspect]
     Active Substance: ZOLPIDEM TARTRATE
     Dosage: UNK UNK, UNK, ^6-8^
     Route: 048
     Dates: start: 20180822, end: 20180822

REACTIONS (3)
  - Tachycardia [Unknown]
  - Sleep disorder [Unknown]
  - Intentional overdose [Unknown]

NARRATIVE: CASE EVENT DATE: 20180823
